FAERS Safety Report 9469829 (Version 1)
Quarter: 2013Q3

REPORT INFORMATION
  Report Type: Spontaneous
  Country: US (occurrence: US)
  Receive Date: 20130822
  Receipt Date: 20130822
  Transmission Date: 20140515
  Serious: No
  Sender: FDA-Public Use
  Company Number: US-JNJFOC-20130803373

PATIENT
  Sex: Female

DRUGS (2)
  1. INVEGA SUSTENNA [Suspect]
     Indication: PRODUCT USED FOR UNKNOWN INDICATION
     Route: 042
  2. OLANZAPINE [Concomitant]
     Route: 065

REACTIONS (3)
  - Blood prolactin increased [Recovering/Resolving]
  - Galactorrhoea [Not Recovered/Not Resolved]
  - Off label use [Unknown]
